FAERS Safety Report 8525773-8 (Version None)
Quarter: 2012Q3

REPORT INFORMATION
  Report Type: 
  Country: None (occurrence: None)
  Receive Date: 20120720
  Receipt Date: 20120709
  Transmission Date: 20120928
  Serious: No
  Sender: FDA-Public Use
  Company Number: US-ASTRAZENECA-2010SE37235

PATIENT
  Age: 56 Year
  Sex: Male

DRUGS (1)
  1. RHINOCORT [Suspect]
     Route: 045

REACTIONS (3)
  - DRUG DOSE OMISSION [None]
  - HYPERSENSITIVITY [None]
  - DRUG INEFFECTIVE [None]
